FAERS Safety Report 4498449-4 (Version None)
Quarter: 2004Q4

REPORT INFORMATION
  Report Type: 
  Country: None (occurrence: None)
  Receive Date: 20041105
  Receipt Date: 20041021
  Transmission Date: 20050328
  Serious: Yes (Hospitalization)
  Sender: FDA-Public Use
  Company Number: B0346741A

PATIENT
  Age: 22 Year
  Sex: Female

DRUGS (4)
  1. PYRIMETHAMINE TAB [Suspect]
     Indication: CONGENITAL TOXOPLASMOSIS
  2. SULFADIAZINE [Suspect]
     Indication: TOXOPLASMOSIS
  3. SPIRAMYCIN [Concomitant]
  4. CALCIUM FOLINATE [Concomitant]

REACTIONS (4)
  - DRUG EXPOSURE DURING PREGNANCY [None]
  - FOLATE DEFICIENCY [None]
  - PANCYTOPENIA [None]
  - VITAMIN B12 DEFICIENCY [None]
